FAERS Safety Report 5532082-8 (Version None)
Quarter: 2007Q4

REPORT INFORMATION
  Report Type: 
  Country: None (occurrence: None)
  Receive Date: 20071203
  Receipt Date: 20071120
  Transmission Date: 20080405
  Serious: Yes (Death, Hospitalization)
  Sender: FDA-Public Use
  Company Number: B0497646A

PATIENT
  Age: 71 Year
  Sex: Male

DRUGS (3)
  1. ZOPHREN [Suspect]
     Indication: PROPHYLAXIS
     Dosage: 8MG PER DAY
     Route: 048
     Dates: start: 20070910, end: 20070914
  2. TEMODAL [Suspect]
     Indication: GLIOBLASTOMA
     Dosage: 300MG PER DAY
     Route: 048
     Dates: start: 20070610, end: 20070914
  3. DEPAKINE CHRONO [Concomitant]
     Dosage: 1500MG PER DAY
     Route: 048
     Dates: start: 20070910, end: 20070914

REACTIONS (2)
  - COMA [None]
  - EPILEPSY [None]
